FAERS Safety Report 8775179 (Version 1)
Quarter: 2012Q4

REPORT INFORMATION
  Report Type: 
  Country: US (occurrence: US)
  Receive Date: 20120910
  Receipt Date: 20120910
  Transmission Date: 20130627
  Serious: Yes (Death)
  Sender: FDA-Public Use
  Company Number: US-AMGEN-USASP2012056125

PATIENT

DRUGS (1)
  1. ENBREL [Suspect]
     Dosage: 50 UNK, qwk
     Route: 064
     Dates: start: 20100501, end: 20110501

REACTIONS (1)
  - Foetal death [Fatal]
